FAERS Safety Report 10520639 (Version 1)
Quarter: 2014Q4

REPORT INFORMATION
  Report Type: Spontaneous
  Country: US (occurrence: US)
  Receive Date: 20141015
  Receipt Date: 20141015
  Transmission Date: 20150528
  Serious: Yes (Other)
  Sender: FDA-Public Use
  Company Number: US-SA-2014SA122396

PATIENT
  Age: 84 Year
  Sex: Female
  Weight: 83.46 kg

DRUGS (3)
  1. DICYCLOMINE [Concomitant]
     Active Substance: DICYCLOMINE HYDROCHLORIDE
  2. AVALIDE [Suspect]
     Active Substance: HYDROCHLOROTHIAZIDE\IRBESARTAN
     Dosage: 90 COUNT AVALIDE 300\12.5 MG
     Route: 065
     Dates: start: 2000
  3. CELEBREX [Concomitant]
     Active Substance: CELECOXIB

REACTIONS (4)
  - Swelling [Unknown]
  - Product physical issue [Unknown]
  - Blood pressure increased [Unknown]
  - Drug ineffective [Unknown]
